FAERS Safety Report 8262382-2 (Version None)
Quarter: 2012Q2

REPORT INFORMATION
  Report Type: 
  Country: None (occurrence: None)
  Receive Date: 20120405
  Receipt Date: 20120323
  Transmission Date: 20120825
  Serious: Yes (Death, Hospitalization)
  Sender: FDA-Public Use
  Company Number: CA-ROCHE-799437

PATIENT
  Sex: Female

DRUGS (14)
  1. AMLODIPINE [Concomitant]
  2. CALCIUM CARBONATE [Concomitant]
  3. CYCLOSPORINE [Suspect]
     Indication: IMMUNOSUPPRESSION
     Route: 048
     Dates: start: 20070226, end: 20111125
  4. FUROSEMIDE [Concomitant]
  5. MYCOPHENOLATE MOFETIL (CELLCEPT) [Suspect]
     Indication: IMMUNOSUPPRESSION
     Route: 065
  6. TOBRADEX [Concomitant]
  7. TYLENOL [Concomitant]
  8. KETOROLAC TROMETHAMINE [Concomitant]
  9. OMEPRAZOLE [Concomitant]
  10. NOVOLIN 70/30 [Concomitant]
  11. REPLAVITE [Concomitant]
  12. VITAMIN D [Concomitant]
  13. OXYCODONE HCL AND ACETAMINOPHEN [Concomitant]
  14. PREDNISOLONE [Suspect]
     Indication: IMMUNOSUPPRESSION

REACTIONS (4)
  - PERIPHERAL ISCHAEMIA [None]
  - LOCALISED INFECTION [None]
  - INTESTINAL ISCHAEMIA [None]
  - DRY GANGRENE [None]
